FAERS Safety Report 16594398 (Version 1)
Quarter: 2019Q3

REPORT INFORMATION
  Report Type: Other
  Country: US (occurrence: US)
  Receive Date: 20190718
  Receipt Date: 20190718
  Transmission Date: 20191004
  Serious: No
  Sender: FDA-Public Use
  Company Number: US-SWEDISH ORPHAN BIOVITRUM-2019US0114

PATIENT
  Sex: Male

DRUGS (10)
  1. ZOFRAN [Concomitant]
     Active Substance: ONDANSETRON HYDROCHLORIDE
  2. ALBUTEROL INHALER [Concomitant]
     Active Substance: ALBUTEROL
  3. ATARAX [Concomitant]
     Active Substance: HYDROXYZINE HYDROCHLORIDE
  4. KINERET [Suspect]
     Active Substance: ANAKINRA
     Route: 058
     Dates: start: 20181220
  5. PREDNISONE. [Concomitant]
     Active Substance: PREDNISONE
  6. METHADONE [Concomitant]
     Active Substance: METHADONE HYDROCHLORIDE
  7. HYDROCORTISONE CREAM [Concomitant]
     Active Substance: HYDROCORTISONE
  8. HYDROCODONE [Concomitant]
     Active Substance: HYDROCODONE
  9. PROTONIX [Concomitant]
     Active Substance: PANTOPRAZOLE SODIUM
  10. LORATADINE. [Concomitant]
     Active Substance: LORATADINE

REACTIONS (4)
  - Headache [Unknown]
  - Pharyngeal swelling [Unknown]
  - Urticaria [Unknown]
  - Abdominal pain upper [Unknown]
